FAERS Safety Report 21804370 (Version 1)
Quarter: 2023Q1

REPORT INFORMATION
  Report Type: Spontaneous
  Country: US (occurrence: US)
  Receive Date: 20230102
  Receipt Date: 20230102
  Transmission Date: 20230417
  Serious: Yes (Other)
  Sender: FDA-Public Use
  Company Number: US-CADILA HEALTHCARE LIMITED-US-ZYDUS-086423

PATIENT

DRUGS (4)
  1. LANSOPRAZOLE [Interacting]
     Active Substance: LANSOPRAZOLE
     Indication: Cystic fibrosis
     Dosage: UNK
     Route: 065
  2. CLOFAZIMINE [Interacting]
     Active Substance: CLOFAZIMINE
     Indication: Cystic fibrosis
     Dosage: UNK
     Route: 065
  3. ONDANSETRON [Interacting]
     Active Substance: ONDANSETRON
     Indication: Cystic fibrosis
     Dosage: UNK
     Route: 065
  4. ELEXACAFTOR\IVACAFTOR\TEZACAFTOR [Interacting]
     Active Substance: ELEXACAFTOR\IVACAFTOR\TEZACAFTOR
     Indication: Cystic fibrosis
     Dosage: UNK
     Route: 065

REACTIONS (2)
  - Drug interaction [Unknown]
  - Drug-induced liver injury [Unknown]
